FAERS Safety Report 7645599-7 (Version None)
Quarter: 2011Q3

REPORT INFORMATION
  Report Type: 
  Country: None (occurrence: None)
  Receive Date: 20110729
  Receipt Date: 20110722
  Transmission Date: 20111222
  Serious: No
  Sender: FDA-Public Use
  Company Number: US-PFIZER INC-2011166996

PATIENT
  Sex: Female

DRUGS (7)
  1. SUTENT [Suspect]
     Dosage: 25 MG, 1X/DAY
     Route: 048
  2. CALCIUM [Concomitant]
     Dosage: 500 TAB
  3. SPIRONOLACTONE [Concomitant]
     Dosage: 100 MG, UNK
  4. OCTREOTIDE [Concomitant]
     Dosage: 200 UG, UNK
  5. VITAMIN B COMPLEX CAP [Concomitant]
     Dosage: UNK
  6. LEVOTHROID [Concomitant]
     Dosage: 150 UG, UNK
  7. VITAMIN B-12 [Concomitant]
     Dosage: 1000 UG, UNK

REACTIONS (4)
  - PETECHIAE [None]
  - EYE PRURITUS [None]
  - WHITE BLOOD CELL COUNT DECREASED [None]
  - PRURITUS [None]
